FAERS Safety Report 4774106-1 (Version None)
Quarter: 2005Q3

REPORT INFORMATION
  Report Type: 
  Country: None (occurrence: None)
  Receive Date: 20050914
  Receipt Date: 20050406
  Transmission Date: 20060218
  Serious: Yes (Hospitalization)
  Sender: FDA-Public Use
  Company Number: 163-20785-05040152

PATIENT
  Age: 53 Year
  Sex: Female
  Weight: 102.9665 kg

DRUGS (17)
  1. THALOMID [Suspect]
     Indication: FIBROMYALGIA
     Dosage: 150 MG, QD, ORAL
     Route: 048
     Dates: start: 20050328, end: 20050401
  2. PROVIGIL [Concomitant]
  3. LEXAPRO [Concomitant]
  4. WELLBUTRIN [Concomitant]
  5. HYZAAR (HYZAAR) (PILL) [Concomitant]
  6. ASA (ACETYLSALCYLIC ACID) [Concomitant]
  7. BUSPAR [Concomitant]
  8. LORTAB [Concomitant]
  9. REFLAFEN (NABUMETONE) [Concomitant]
  10. AMBIEN [Concomitant]
  11. PRILOSEC [Concomitant]
  12. TYLENOL [Concomitant]
  13. MOTRIN [Concomitant]
  14. MULTIVITAMIN [Concomitant]
  15. FOLIC ACID [Concomitant]
  16. OMEGA FISH OIL (FISH OIL) (TABLETS) [Concomitant]
  17. CALCIUM + VITAMIN D (CALCIUM WITH VITAMIN D) [Concomitant]

REACTIONS (1)
  - SYNCOPE [None]
